FAERS Safety Report 7292621-6 (Version None)
Quarter: 2011Q1

REPORT INFORMATION
  Report Type: 
  Country: None (occurrence: None)
  Receive Date: 20110209
  Receipt Date: 20110209
  Transmission Date: 20110831
  Serious: Yes (Hospitalization)
  Sender: FDA-Public Use
  Company Number: None

PATIENT
  Age: 34 Year
  Sex: Female
  Weight: 68.0396 kg

DRUGS (1)
  1. ALCOHOL PREP PAD 1 PAD, ISOPROPYL TRIAD ALCOHOL, 70% V/V [Suspect]
     Indication: THERAPEUTIC SKIN CARE TOPICAL
     Dates: start: 20101215, end: 20110119

REACTIONS (3)
  - BACTERIAL INFECTION [None]
  - PRODUCT QUALITY ISSUE [None]
  - LOCALISED INFECTION [None]
